FAERS Safety Report 5084499-6 (Version None)
Quarter: 2006Q3

REPORT INFORMATION
  Report Type: 
  Country: None (occurrence: None)
  Receive Date: 20060814
  Receipt Date: 20060803
  Transmission Date: 20061208
  Serious: Yes (Life-Threatening, Other)
  Sender: FDA-Public Use
  Company Number: HQWYE509823MAY06

PATIENT
  Age: 79 Year
  Sex: Male

DRUGS (1)
  1. PIPERACILLIN SODIUM AND TAZOBACTAM SODIUM [Suspect]
     Indication: PYELONEPHRITIS ACUTE
     Dosage: 2.5 G 2X PER 1 DAY
     Route: 041
     Dates: start: 20060509, end: 20060510

REACTIONS (1)
  - ASTHMA [None]
